FAERS Safety Report 9198875 (Version 3)
Quarter: 2013Q2

REPORT INFORMATION
  Report Type: Spontaneous
  Country: MY (occurrence: MY)
  Receive Date: 20130329
  Receipt Date: 20130520
  Transmission Date: 20140414
  Serious: Yes (Hospitalization)
  Sender: FDA-Public Use
  Company Number: MY-009507513-1303MYS012493

PATIENT
  Age: 33 Year
  Sex: Female

DRUGS (2)
  1. IMPLANON NXT [Suspect]
     Indication: CONTRACEPTION
     Dosage: 1 DF, UNK
     Route: 059
     Dates: start: 20110223
  2. CORTICOSTEROIDS (UNSPECIFIED) [Concomitant]

REACTIONS (3)
  - Blood pressure decreased [Unknown]
  - Haemorrhage [Recovered/Resolved]
  - Haemoglobin decreased [Recovered/Resolved]
